FAERS Safety Report 22163272 (Version 2)
Quarter: 2023Q2

REPORT INFORMATION
  Report Type: Spontaneous
  Country: DE (occurrence: DE)
  Receive Date: 20230401
  Receipt Date: 20230414
  Transmission Date: 20230722
  Serious: Yes (Other)
  Sender: FDA-Public Use
  Company Number: None

PATIENT
  Sex: Female

DRUGS (9)
  1. GEMCITABINE [Suspect]
     Active Substance: GEMCITABINE
     Indication: Diffuse large B-cell lymphoma
     Dosage: IN FIFTH LINE PATIENT WAS TREATED WITH GEMOX (GEMCITABINE OXALIPLATIN), RESPONSE: NO RESPONSE/STABLE
     Dates: start: 20230201, end: 20230308
  2. BENDAMUSTINE [Suspect]
     Active Substance: BENDAMUSTINE
     Indication: Diffuse large B-cell lymphoma
     Dosage: IN SECOND LINE THE PATIENT WAS TREATED RITUXIMAB WITH POLATUZUMAB AND BENDAMUSTINE, RESPONSE: DISEAS
     Dates: start: 20220501, end: 20220601
  3. OXALIPLATIN [Suspect]
     Active Substance: OXALIPLATIN
     Indication: Diffuse large B-cell lymphoma
     Dosage: IN FIFTH LINE THE PATIENT WAS TREATED WITH GEMOX (GEMCITABINE OXALIPLATIN), RESPONSE: NO RESPONSE/ST
     Dates: start: 20230201, end: 20230308
  4. POLIVY [Suspect]
     Active Substance: POLATUZUMAB VEDOTIN-PIIQ
     Indication: Diffuse large B-cell lymphoma
     Dosage: IN SECOND LINE THE PATIENT WAS TREATED RITUXIMAB WITH POLATUZUMAB AND BENDAMUSTINE, RESPONSE: DISEAS
     Dates: start: 20220501, end: 20220601
  5. CYCLOPHOSPHAMIDE\DOXORUBICIN\PREDNISONE\VINCRISTINE SULFATE [Suspect]
     Active Substance: CYCLOPHOSPHAMIDE\DOXORUBICIN\PREDNISONE\VINCRISTINE SULFATE
     Indication: Diffuse large B-cell lymphoma
     Dosage: IN FIRST LINE THE PATIENT WAS TREATED WITH RITUXIMAB AND CHOP, RESPONSE: PROGRESSIVE DISEASE.
     Dates: start: 20220201, end: 20220501
  6. MABTHERA [Suspect]
     Active Substance: RITUXIMAB
     Indication: Diffuse large B-cell lymphoma
     Dosage: IN SECOND LINE THE PATIENT WAS TREATED RITUXIMAB WITH POLATUZUMAB AND BENDAMUSTINE, RESPONSE: DISEAS
     Route: 058
     Dates: start: 20220501, end: 20220601
  7. MABTHERA [Suspect]
     Active Substance: RITUXIMAB
     Dosage: IN FIRST LINE THE PATIENT WAS TREATED WITH RITUXIMAB AND CHOP, RESPONSE: PROGRESSIVE DISEASE.
     Route: 058
     Dates: start: 20220201, end: 20220501
  8. TAFASITAMAB-CXIX [Suspect]
     Active Substance: TAFASITAMAB-CXIX
     Indication: Diffuse large B-cell lymphoma
     Dosage: IN FOURTH LINE THE PATIENT WAS TREATED WITH TAFASITAMAB AND LENALIDOMIDE, RESPONSE: NO RESPONSE/STAB
     Dates: start: 20230101, end: 20230201
  9. LENALIDOMIDE [Suspect]
     Active Substance: LENALIDOMIDE
     Indication: Diffuse large B-cell lymphoma
     Dosage: 1N FOURTH LINE THE PATIENT WAS TREATED WITH TAFASIATAMAB AND LENALIDOMIDE RESPONSE: NO RESPONSE/STAB
     Dates: start: 20230101, end: 20230201

REACTIONS (1)
  - Lymphoma [Unknown]
